FAERS Safety Report 5031572-4 (Version None)
Quarter: 2006Q2

REPORT INFORMATION
  Report Type: 
  Country: None (occurrence: None)
  Receive Date: 20060621
  Receipt Date: 20060503
  Transmission Date: 20061013
  Serious: Yes (Hospitalization)
  Sender: FDA-Public Use
  Company Number: FR-GLAXOSMITHKLINE-B0422044A

PATIENT
  Age: 93 Year
  Sex: Female

DRUGS (3)
  1. CLAMOXYL [Suspect]
     Dosage: 1G TWICE PER DAY
     Route: 048
     Dates: start: 20060331, end: 20060407
  2. ZECLAR [Suspect]
     Dosage: 500MG TWICE PER DAY
     Route: 048
     Dates: start: 20060331, end: 20060407
  3. NEXIUM [Concomitant]
     Indication: DUODENAL ULCER
     Dosage: 40MG PER DAY
     Route: 048
     Dates: start: 20060331

REACTIONS (4)
  - DYSPNOEA [None]
  - GENERALISED OEDEMA [None]
  - RASH [None]
  - TOXIC SKIN ERUPTION [None]
